FAERS Safety Report 25467436 (Version 1)
Quarter: 2025Q2

REPORT INFORMATION
  Report Type: Spontaneous
  Country: GB (occurrence: GB)
  Receive Date: 20250623
  Receipt Date: 20250623
  Transmission Date: 20250717
  Serious: Yes (Other)
  Sender: RANBAXY
  Company Number: GB-SUN PHARMACEUTICAL INDUSTRIES LTD-2025RR-512723

PATIENT
  Age: 7 Decade
  Sex: Female

DRUGS (4)
  1. WARFARIN [Suspect]
     Active Substance: WARFARIN
     Indication: Thrombosis
     Route: 065
  2. WARFARIN [Suspect]
     Active Substance: WARFARIN
     Dosage: 10 MILLIGRAM, DAILY
     Route: 065
  3. ENOXAPARIN SODIUM [Suspect]
     Active Substance: ENOXAPARIN SODIUM
     Indication: Hip arthroplasty
     Route: 065
  4. ARGATROBAN [Suspect]
     Active Substance: ARGATROBAN
     Indication: Thrombosis
     Route: 042

REACTIONS (2)
  - Heparin-induced thrombocytopenia [Recovered/Resolved]
  - Deep vein thrombosis [Unknown]
